FAERS Safety Report 23783140 (Version 1)
Quarter: 2024Q2

REPORT INFORMATION
  Report Type: Other
  Country: BE (occurrence: BE)
  Receive Date: 20240425
  Receipt Date: 20240425
  Transmission Date: 20240715
  Serious: Yes (Death)
  Sender: FDA-Public Use
  Company Number: BE-B.Braun Medical Inc.-2153806

PATIENT
  Age: 56 Year
  Sex: Male

DRUGS (1)
  1. ACETAMINOPHEN [Suspect]
     Active Substance: ACETAMINOPHEN
     Indication: Musculoskeletal chest pain

REACTIONS (18)
  - Acute hepatic failure [Fatal]
  - Cardiac arrest [Fatal]
  - Bradycardia [Fatal]
  - Pupillary reflex impaired [Fatal]
  - Shock [Fatal]
  - Distributive shock [Fatal]
  - Status epilepticus [Fatal]
  - Mydriasis [Fatal]
  - Respiratory failure [Fatal]
  - Lung infiltration [Fatal]
  - Gastric haemorrhage [Fatal]
  - Hyperlactacidaemia [Fatal]
  - Metabolic acidosis [Fatal]
  - Toxicity to various agents [Fatal]
  - Multiple organ dysfunction syndrome [Fatal]
  - Acute kidney injury [Fatal]
  - Hepatic encephalopathy [Fatal]
  - Hepatitis acute [Fatal]
